FAERS Safety Report 5306939-7 (Version None)
Quarter: 2007Q2

REPORT INFORMATION
  Report Type: 
  Country: None (occurrence: None)
  Receive Date: 20070419
  Receipt Date: 20070405
  Transmission Date: 20071010
  Serious: Yes (Life-Threatening, Hospitalization)
  Sender: FDA-Public Use
  Company Number: POMP-11012

PATIENT
  Age: 8 Month
  Sex: Male

DRUGS (1)
  1. MYOZYME [Suspect]
     Indication: GLYCOGEN STORAGE DISEASE TYPE II
     Dosage: 130 MG Q2WKS IV
     Route: 042
     Dates: start: 20061118

REACTIONS (2)
  - RESPIRATORY DISTRESS [None]
  - TRACHEITIS [None]
